FAERS Safety Report 9468009 (Version 4)
Quarter: 2015Q2

REPORT INFORMATION
  Report Type: Report from Study
  Country: GR (occurrence: GR)
  Receive Date: 20130821
  Receipt Date: 20150525
  Transmission Date: 20150821
  Serious: Yes (Life-Threatening, Hospitalization)
  Sender: FDA-Public Use
  Company Number: GR-TEVA-426980USA

PATIENT
  Age: 78 Year
  Sex: Male
  Weight: 60 kg

DRUGS (17)
  1. ZURCAZOL [Concomitant]
     Indication: GASTROINTESTINAL DISORDER THERAPY
     Route: 048
     Dates: start: 20130713
  2. APOTEL [Concomitant]
     Indication: PREMEDICATION
     Dosage: 33.3333 MILLIGRAM DAILY;
     Dates: start: 20130710
  3. VALTREX [Concomitant]
     Active Substance: VALACYCLOVIR HYDROCHLORIDE
     Dosage: 500 MILLIGRAM DAILY;
     Route: 048
     Dates: start: 20130713
  4. BENDAMUSTIN [Suspect]
     Active Substance: BENDAMUSTINE
     Indication: CHRONIC LYMPHOCYTIC LEUKAEMIA
     Route: 042
     Dates: start: 20130711
  5. BACTRIMEL [Concomitant]
     Active Substance: SULFAMETHOXAZOLE\TRIMETHOPRIM
     Indication: PROPHYLACTIC CHEMOTHERAPY
     Route: 048
     Dates: start: 20130713
  6. LIPITOR [Concomitant]
     Active Substance: ATORVASTATIN CALCIUM
     Indication: DYSLIPIDAEMIA
     Dosage: 10 MILLIGRAM DAILY;
     Route: 048
  7. BENDAMUSTIN [Suspect]
     Active Substance: BENDAMUSTINE
     Dosage: REGIMEN #2
     Route: 042
     Dates: start: 20130809
  8. FENISTIL [Concomitant]
     Active Substance: DIMETHINDENE
     Indication: PREMEDICATION
     Dosage: .2667 MILLIGRAM DAILY;
     Route: 042
     Dates: start: 20130710
  9. ZANTAC [Concomitant]
     Active Substance: RANITIDINE HYDROCHLORIDE
     Indication: PREMEDICATION
     Dosage: 5 MILLIGRAM DAILY;
     Route: 042
  10. DUAGAN [Concomitant]
     Dosage: 1 DOSE
  11. PLACEBO [Suspect]
     Active Substance: UNSPECIFIED INGREDIENT
     Indication: CHRONIC LYMPHOCYTIC LEUKAEMIA
     Dosage: 420 MILLIGRAM DAILY; BLINDED STUDY MEDICATION
     Route: 048
     Dates: start: 20130711
  12. ONDANSETRON [Concomitant]
     Active Substance: ONDANSETRON
     Indication: PREMEDICATION
     Dosage: .2667 MILLIGRAM DAILY;
     Route: 042
     Dates: start: 20130711
  13. RITUXIMAB [Suspect]
     Active Substance: RITUXIMAB
     Indication: CHRONIC LYMPHOCYTIC LEUKAEMIA
     Dosage: ONCE EVERY 28 DAYS
     Route: 042
     Dates: start: 20130710
  14. RITUXIMAB [Suspect]
     Active Substance: RITUXIMAB
     Route: 042
     Dates: start: 20130808
  15. PLACEBO [Suspect]
     Active Substance: UNSPECIFIED INGREDIENT
     Dosage: BLINDED STUDY MEDICATION
     Dates: start: 20130809
  16. NORVASC [Concomitant]
     Active Substance: AMLODIPINE BESYLATE
     Indication: HYPERTENSION
     Dosage: 5 MILLIGRAM DAILY;
     Route: 048
  17. INSULIN [Concomitant]
     Active Substance: INSULIN NOS
     Indication: TYPE 2 DIABETES MELLITUS
     Dosage: 1 DOSE
     Route: 058

REACTIONS (1)
  - Syncope [Recovered/Resolved]

NARRATIVE: CASE EVENT DATE: 20130809
